FAERS Safety Report 9167844 (Version 4)
Quarter: 2013Q4

REPORT INFORMATION
  Report Type: Spontaneous
  Country: US (occurrence: None)
  Receive Date: 20130304
  Receipt Date: 20131029
  Transmission Date: 20140711
  Serious: Yes (Disabling, Other)
  Sender: FDA-Public Use
  Company Number: ACO_34460_2013

PATIENT
  Age: 72 Year
  Sex: Male

DRUGS (2)
  1. AMPYRA [Suspect]
     Indication: GAIT DISTURBANCE
     Dosage: ORAL.
     Dates: start: 20120919, end: 2013
  2. AMPYRA [Suspect]
     Indication: MULTIPLE SCLEROSIS
     Dosage: ORAL.
     Dates: start: 20120919, end: 2013

REACTIONS (2)
  - Blindness [None]
  - Musculoskeletal disorder [None]
